FAERS Safety Report 5736906-0 (Version None)
Quarter: 2008Q2

REPORT INFORMATION
  Report Type: 
  Country: None (occurrence: None)
  Receive Date: 20080509
  Receipt Date: 20080507
  Transmission Date: 20081010
  Serious: Yes (Hospitalization)
  Sender: FDA-Public Use
  Company Number: B0518861A

PATIENT
  Age: 18 Year
  Sex: Male

DRUGS (3)
  1. AMOX. NA + K CLAVULANATE (FORMULATION UNKNOWN) (GENERIC) (AMOX. NA + C [Suspect]
     Indication: GASTROENTERITIS BACTERIAL
     Dosage: 500 MG/THREE TIMES PER DAY/UNKNO
  2. HYDRATION THERAPY [Concomitant]
  3. CIPROFLOXACIN HCL [Concomitant]

REACTIONS (9)
  - ALANINE AMINOTRANSFERASE INCREASED [None]
  - ASPARTATE AMINOTRANSFERASE INCREASED [None]
  - BLOOD GLUCOSE INCREASED [None]
  - CAMPYLOBACTER INFECTION [None]
  - CHILLS [None]
  - DIARRHOEA HAEMORRHAGIC [None]
  - LEUKOPENIA [None]
  - PYREXIA [None]
  - SALMONELLOSIS [None]
